FAERS Safety Report 4432121-1 (Version None)
Quarter: 2004Q3

REPORT INFORMATION
  Report Type: 
  Country: None (occurrence: None)
  Receive Date: 20040819
  Receipt Date: 20040804
  Transmission Date: 20050211
  Serious: Yes (Life-Threatening)
  Sender: FDA-Public Use
  Company Number: JP-2004-029777

PATIENT
  Age: 50 Year
  Sex: Female

DRUGS (1)
  1. BETAFERON(INTERFERON BETA - 1B) INJECTION, 250UG [Suspect]
     Indication: MULTIPLE SCLEROSIS
     Dates: start: 20020101

REACTIONS (1)
  - CEREBRAL HAEMORRHAGE [None]
